FAERS Safety Report 4292803-1 (Version None)
Quarter: 2004Q1

REPORT INFORMATION
  Report Type: 
  Country: None (occurrence: None)
  Receive Date: 20040210
  Receipt Date: 20040129
  Transmission Date: 20041129
  Serious: Yes (Life-Threatening, Hospitalization)
  Sender: FDA-Public Use
  Company Number: SP-200001475

PATIENT
  Age: 27 Year
  Sex: Female

DRUGS (13)
  1. REMICADE [Suspect]
     Indication: JUVENILE ARTHRITIS
     Dosage: SEE IMAGE
     Route: 041
     Dates: start: 20000629, end: 20000629
  2. REMICADE [Suspect]
     Indication: JUVENILE ARTHRITIS
     Dosage: SEE IMAGE
     Route: 041
     Dates: start: 20000713
  3. CORTICOSTEROIDS (CORTICOSTEROIDS) [Suspect]
     Indication: JUVENILE ARTHRITIS
     Dosage: SEE IMAGE
  4. METHOTREXATE [Suspect]
     Indication: JUVENILE ARTHRITIS
     Dates: start: 19990501, end: 19990701
  5. NAPROXENE (NAPROXEN) [Concomitant]
  6. NAPROXEN SODIUM [Concomitant]
  7. BACTRIM [Concomitant]
  8. CALCIUM CARBONATE (CALCIUM CARBONATE) [Concomitant]
  9. PREDNISONE [Concomitant]
  10. DEDROGYL (CALCIFEDIOL) [Concomitant]
  11. EFFERALGAN CODEINE (PANADEINE CO) [Concomitant]
  12. CYCLOPHOSPHAMIDE [Concomitant]
  13. AZATHIOPRINE [Concomitant]

REACTIONS (11)
  - COMA [None]
  - CONDITION AGGRAVATED [None]
  - ENCEPHALOPATHY [None]
  - EOSINOPHILIA [None]
  - HEPATIC FAILURE [None]
  - HEPATIC NECROSIS [None]
  - HEPATITIS FULMINANT [None]
  - HYPOTENSION [None]
  - LIVER DISORDER [None]
  - LIVER TRANSPLANT [None]
  - URTICARIA [None]
